FAERS Safety Report 21507617 (Version 1)
Quarter: 2022Q4

REPORT INFORMATION
  Report Type: Spontaneous
  Country: DE (occurrence: DE)
  Receive Date: 20221026
  Receipt Date: 20221026
  Transmission Date: 20230113
  Serious: Yes (Hospitalization)
  Sender: FDA-Public Use
  Company Number: DE-ADRED-08110-02

PATIENT
  Age: 74 Year
  Sex: Female

DRUGS (7)
  1. SIMVASTATIN [Suspect]
     Active Substance: SIMVASTATIN
     Indication: Product used for unknown indication
     Dosage: 30 MG, BIS AUF WEITERES PAUSIERT?30 MG, PAUSED UNTIL FURTHER NOTICE
     Route: 048
  2. Vitamin B12 1000?g inject Jenapharm [Concomitant]
     Indication: Product used for unknown indication
     Dosage: 1000 UG, EINMAL PRO WOCHE?1000 UG, ONCE A WEEK
     Route: 058
  3. HCT AL 12,5mg [Concomitant]
     Indication: Product used for unknown indication
     Dosage: 12.5 MG, 0.5-0-0-0
     Route: 048
  4. POLYETHYLENE GLYCOL 3350\POTASSIUM CHLORIDE\SODIUM BICARBONATE\SODIUM [Concomitant]
     Active Substance: POLYETHYLENE GLYCOL 3350\POTASSIUM CHLORIDE\SODIUM BICARBONATE\SODIUM CHLORIDE
     Indication: Product used for unknown indication
     Dosage: 1-0-1-0
     Route: 048
  5. Losartan 50-1A Pharma [Concomitant]
     Indication: Product used for unknown indication
     Dosage: 50 MG, 0.5-0-0-0
     Route: 048
  6. ASPIRIN [Concomitant]
     Active Substance: ASPIRIN
     Indication: Product used for unknown indication
     Dosage: 100 MG, 1-0-0-0
     Route: 048
  7. INSULIN LISPRO [Concomitant]
     Active Substance: INSULIN LISPRO
     Indication: Product used for unknown indication
     Dosage: 50|50 IE, JE NACH BZ?50|50 IU, DEPENDING ON BG
     Route: 058

REACTIONS (6)
  - Condition aggravated [Unknown]
  - Gait disturbance [Unknown]
  - Musculoskeletal pain [Unknown]
  - Pain [Unknown]
  - Arthralgia [Unknown]
  - Product prescribing error [Unknown]
